FAERS Safety Report 9482791 (Version 1)
Quarter: 2013Q3

REPORT INFORMATION
  Report Type: Spontaneous
  Country: FR (occurrence: FR)
  Receive Date: 20130828
  Receipt Date: 20130828
  Transmission Date: 20140515
  Serious: Yes (Hospitalization)
  Sender: FDA-Public Use
  Company Number: FR-B.I. PHARMACEUTICALS,INC./RIDGEFIELD-2013-FF-02136FF

PATIENT
  Age: 80 Year
  Sex: Female

DRUGS (4)
  1. PRADAXA [Suspect]
     Indication: ATRIAL FIBRILLATION
     Dosage: 220 MG
     Route: 048
     Dates: start: 201306, end: 20130730
  2. COZAAR [Concomitant]
  3. PROPRANOLOL [Concomitant]
  4. LASILIX [Concomitant]
     Indication: DYSPNOEA

REACTIONS (7)
  - Pericardial haemorrhage [Recovered/Resolved]
  - Cardiac tamponade [Recovered/Resolved]
  - Cardiac failure [Recovered/Resolved]
  - Kaolin cephalin clotting time prolonged [Recovered/Resolved]
  - Renal failure acute [Recovered/Resolved]
  - Hepatic failure [Recovered/Resolved]
  - Blood pressure decreased [Recovered/Resolved]
